FAERS Safety Report 18540427 (Version 1)
Quarter: 2020Q4

REPORT INFORMATION
  Report Type: Spontaneous
  Country: SE (occurrence: SE)
  Receive Date: 20201124
  Receipt Date: 20201124
  Transmission Date: 20210114
  Serious: Yes (Hospitalization)
  Sender: FDA-Public Use
  Company Number: SE-PFIZER INC-2020421096

PATIENT
  Age: 87 Year
  Sex: Male
  Weight: 68.5 kg

DRUGS (11)
  1. ACETYLSALICYLIC ACID [Concomitant]
     Active Substance: ASPIRIN
     Dosage: 75 MG, 1X/DAY
  2. BEHEPAN [CYANOCOBALAMIN] [Concomitant]
     Active Substance: CYANOCOBALAMIN
     Dosage: 1 MG, 1X/DAY
  3. FOLIC ACID. [Concomitant]
     Active Substance: FOLIC ACID
     Dosage: 5 MG, 2X/WEEK
     Dates: start: 2016
  4. SERETIDE [Concomitant]
     Active Substance: FLUTICASONE PROPIONATE\SALMETEROL XINAFOATE
     Dosage: UNK, AS NEEDED (1-2 INHALATION)
  5. PREDNISOLON ALTERNOVA [Concomitant]
     Active Substance: PREDNISOLONE
     Indication: RHEUMATIC DISORDER
     Dosage: 5 MG, 1X/DAY
     Dates: start: 2016
  6. SALAZOPYRIN EN [Suspect]
     Active Substance: SULFASALAZINE
     Indication: RHEUMATIC DISORDER
     Dosage: 1000 MG, 2X/DAY (2 TABLETS)
     Dates: start: 2007, end: 20201020
  7. LOSARTAN POTASSIUM. [Concomitant]
     Active Substance: LOSARTAN POTASSIUM
     Indication: BLOOD PRESSURE ABNORMAL
     Dosage: 75 MG, DAILY (1 TABLET TO BREAKFAST, 0.5 TABLET IN THE EVENING)
  8. PREDNISOLON ALTERNOVA [Concomitant]
     Active Substance: PREDNISOLONE
     Dosage: 15 MG, 3X/DAY (FOR ONE WEEK)
  9. ATORVASTIN [Concomitant]
     Active Substance: ATORVASTATIN
     Dosage: 80 MG, 1X/DAY
  10. PREDNISOLON ALTERNOVA [Concomitant]
     Active Substance: PREDNISOLONE
     Dosage: UNK, WEEKLY (HALF A PILL PER WEEK)
  11. VENTOLINE [SALBUTAMOL] [Concomitant]
     Active Substance: ALBUTEROL SULFATE
     Dosage: 0.1 MG, AS NEEDED

REACTIONS (9)
  - Fatigue [Not Recovered/Not Resolved]
  - Nocturia [Not Recovered/Not Resolved]
  - Off label use [Unknown]
  - Condition aggravated [Not Recovered/Not Resolved]
  - Benign prostatic hyperplasia [Unknown]
  - Condition aggravated [Unknown]
  - Urinary incontinence [Not Recovered/Not Resolved]
  - Hypersomnia [Not Recovered/Not Resolved]
  - Hypertonic bladder [Unknown]

NARRATIVE: CASE EVENT DATE: 2007
